FAERS Safety Report 7671826-6 (Version None)
Quarter: 2011Q3

REPORT INFORMATION
  Report Type: 
  Country: None (occurrence: None)
  Receive Date: 20110809
  Receipt Date: 20110729
  Transmission Date: 20111222
  Serious: Yes (Hospitalization)
  Sender: FDA-Public Use
  Company Number: FR-ROCHE-793506

PATIENT
  Sex: Female
  Weight: 129 kg

DRUGS (7)
  1. CLORAZEPATE DIPOTASSIUM [Suspect]
     Dosage: DOSE REDUCED
     Route: 048
  2. ZOLPIDEM [Suspect]
     Dosage: DOSE REDUCED
     Route: 065
  3. VALIUM [Suspect]
     Dosage: DOSE REDUCED
     Route: 048
  4. CLORAZEPATE DIPOTASSIUM [Suspect]
     Dosage: DOSE REDUCED
     Route: 048
  5. VALIUM [Suspect]
     Dosage: DOSE REDUCED
     Route: 048
     Dates: start: 20101214
  6. ZOLPIDEM [Suspect]
     Dosage: DOSE REDUCED
     Route: 065
  7. DIHYDROERGOTAMINE MESYLATE [Suspect]
     Route: 048
     Dates: end: 20101213

REACTIONS (1)
  - HEPATITIS CHOLESTATIC [None]
